FAERS Safety Report 9271397 (Version 2)
Quarter: 2013Q3

REPORT INFORMATION
  Report Type: Spontaneous
  Country: US (occurrence: US)
  Receive Date: 20130506
  Receipt Date: 20130702
  Transmission Date: 20140515
  Serious: No
  Sender: FDA-Public Use
  Company Number: US-PFIZER INC-2013137025

PATIENT
  Age: 49 Year
  Sex: Male

DRUGS (1)
  1. CELEBREX [Suspect]
     Indication: PLANTAR FASCIITIS
     Dosage: 200MG TWICE DAILY AS NEEDED
     Route: 048
     Dates: start: 20100302

REACTIONS (2)
  - Off label use [Unknown]
  - Pain in extremity [Unknown]
